FAERS Safety Report 21424008 (Version 2)
Quarter: 2022Q4

REPORT INFORMATION
  Report Type: Spontaneous
  Country: US (occurrence: None)
  Receive Date: 20221007
  Receipt Date: 20221102
  Transmission Date: 20230112
  Serious: No
  Sender: FDA-Public Use
  Company Number: 2022A313012

PATIENT
  Age: 87 Year
  Sex: Male

DRUGS (2)
  1. BREZTRI [Suspect]
     Active Substance: BUDESONIDE\FORMOTEROL\GLYCOPYRROLATE
     Indication: Asthma
     Dosage: 160/9/4.8MCG AS 2 PUFFS TWICE
     Route: 055
     Dates: start: 2021
  2. SYMBICORT [Suspect]
     Active Substance: BUDESONIDE\FORMOTEROL FUMARATE DIHYDRATE
     Indication: Asthma
     Dosage: 2 PUFFS TWICE A DAY
     Route: 055
     Dates: end: 2021

REACTIONS (4)
  - Asthma [Recovered/Resolved]
  - Wrong technique in device usage process [Not Recovered/Not Resolved]
  - Device malfunction [Unknown]
  - Product use issue [Not Recovered/Not Resolved]

NARRATIVE: CASE EVENT DATE: 20200101
